FAERS Safety Report 5727879-5 (Version None)
Quarter: 2008Q2

REPORT INFORMATION
  Report Type: 
  Country: None (occurrence: None)
  Receive Date: 20080505
  Receipt Date: 20080423
  Transmission Date: 20081010
  Serious: Yes (Other)
  Sender: FDA-Public Use
  Company Number: US-PFIZER INC-2006097160

PATIENT
  Sex: Female
  Weight: 65.8 kg

DRUGS (6)
  1. TIKOSYN [Suspect]
     Indication: ATRIAL FIBRILLATION
     Route: 065
  2. WARFARIN SODIUM [Suspect]
     Indication: CARDIAC ABLATION
     Dosage: TEXT:UNKNOWN-FREQ:UNKNOWN
     Route: 065
     Dates: start: 20060101, end: 20060802
  3. ACETYLSALICYLIC ACID SRT [Suspect]
     Indication: DRUG USE FOR UNKNOWN INDICATION
     Dosage: TEXT:1 DF-FREQ:DAILY
     Route: 065
  4. GENERAL NUTRIENTS/MINERALS/VITAMINS [Concomitant]
     Dosage: TEXT:UNKNOWN-FREQ:UNKNOWN
     Route: 065
  5. PEPCID AC [Concomitant]
  6. ESTROVEN [Concomitant]

REACTIONS (15)
  - ABDOMINAL DISTENSION [None]
  - ARRHYTHMIA [None]
  - ATRIAL FIBRILLATION [None]
  - BACK PAIN [None]
  - CHROMATURIA [None]
  - HAEMORRHAGE URINARY TRACT [None]
  - INTERNATIONAL NORMALISED RATIO INCREASED [None]
  - MICTURITION URGENCY [None]
  - MUSCLE SPASMS [None]
  - SWELLING [None]
  - TACHYCARDIA [None]
  - THIRST [None]
  - URINE OUTPUT DECREASED [None]
  - URINE OUTPUT INCREASED [None]
  - WEIGHT INCREASED [None]
